FAERS Safety Report 18456160 (Version 1)
Quarter: 2020Q4

REPORT INFORMATION
  Report Type: Spontaneous
  Country: US (occurrence: US)
  Receive Date: 20201103
  Receipt Date: 20201103
  Transmission Date: 20210114
  Serious: Yes (Other)
  Sender: FDA-Public Use
  Company Number: US-ACCORD-207035

PATIENT
  Sex: Male

DRUGS (2)
  1. PRAVASTATIN SANDOZ [Concomitant]
     Active Substance: PRAVASTATIN
     Dosage: ONCE A DAY
     Route: 048
  2. CLONAZEPAM ACCORD [Suspect]
     Active Substance: CLONAZEPAM
     Indication: ANXIETY
     Dosage: ONCE A DAY
     Route: 048

REACTIONS (4)
  - Diabetes mellitus [Unknown]
  - Feeling abnormal [Recovered/Resolved]
  - Glycosylated haemoglobin increased [Unknown]
  - Off label use [Unknown]
